FAERS Safety Report 4456884-4 (Version None)
Quarter: 2004Q3

REPORT INFORMATION
  Report Type: 
  Country: None (occurrence: None)
  Receive Date: 20040923
  Receipt Date: 20040920
  Transmission Date: 20050211
  Serious: Yes (Death)
  Sender: FDA-Public Use
  Company Number: BE-JNJFOC-20040903204

PATIENT
  Age: 82 Year
  Sex: Male

DRUGS (4)
  1. PROPULSID [Suspect]
     Indication: DIABETIC GASTROPARESIS
     Route: 049
     Dates: start: 20031212
  2. ASAFLOW [Concomitant]
  3. FLUNITRAZEPAM [Concomitant]
  4. FORLAX [Concomitant]

REACTIONS (1)
  - CEREBROVASCULAR ACCIDENT [None]
